FAERS Safety Report 9093136 (Version 1)
Quarter: 2013Q1

REPORT INFORMATION
  Report Type: Spontaneous
  Country: GB (occurrence: GB)
  Receive Date: 20130201
  Receipt Date: 20130201
  Transmission Date: 20140127
  Serious: Yes (Hospitalization)
  Sender: FDA-Public Use
  Company Number: GB-PFIZER INC-2013036849

PATIENT
  Age: 66 Year
  Sex: Male
  Weight: 56 kg

DRUGS (3)
  1. FLUDARABINE PHOSPHATE [Suspect]
     Indication: CHRONIC LYMPHOCYTIC LEUKAEMIA
     Dosage: 20 MG, CYCLIC (1/1DAYS)
     Route: 048
     Dates: start: 20121012, end: 20121109
  2. CYCLOPHOSPHAMIDE [Concomitant]
     Dosage: UNK
  3. RITUXIMAB [Concomitant]
     Dosage: UNK

REACTIONS (2)
  - Chest pain [Unknown]
  - Stress cardiomyopathy [Not Recovered/Not Resolved]
